FAERS Safety Report 9179663 (Version 1)
Quarter: 2012Q4

REPORT INFORMATION
  Report Type: 
  Country: JP (occurrence: JP)
  Receive Date: 20121029
  Receipt Date: 20121029
  Transmission Date: 20130627
  Serious: Yes (Other)
  Sender: FDA-Public Use
  Company Number: JP-JNJFOC-20121003968

PATIENT
  Age: 8 None
  Sex: Male

DRUGS (1)
  1. ITRIZOLE [Suspect]
     Indication: ASPERGILLOMA
     Route: 048
     Dates: start: 201201

REACTIONS (2)
  - Pneumothorax [Unknown]
  - Dysgeusia [Unknown]
